FAERS Safety Report 11729907 (Version 1)
Quarter: 2015Q4

REPORT INFORMATION
  Report Type: Report from Study
  Country: US (occurrence: US)
  Receive Date: 20151112
  Receipt Date: 20151112
  Transmission Date: 20160304
  Serious: No
  Sender: FDA-Public Use
  Company Number: US-CELGENEUS-USA-2015097282

PATIENT

DRUGS (2)
  1. THALOMID [Suspect]
     Active Substance: THALIDOMIDE
     Indication: PRODUCT USED FOR UNKNOWN INDICATION
     Route: 048
  2. BISPHOSPHONATE [Concomitant]
     Active Substance: UNSPECIFIED INGREDIENT
     Indication: OSTEOPOROSIS PROPHYLAXIS
     Route: 065

REACTIONS (6)
  - Hypothyroidism [Unknown]
  - Panic reaction [Unknown]
  - Stress [Unknown]
  - Crying [Unknown]
  - Depressed mood [Unknown]
  - Blood creatinine increased [Unknown]
